FAERS Safety Report 12362851 (Version 1)
Quarter: 2016Q2

REPORT INFORMATION
  Report Type: Spontaneous
  Country: US (occurrence: US)
  Receive Date: 20160512
  Receipt Date: 20160512
  Transmission Date: 20160815
  Serious: Yes (Other)
  Sender: FDA-Public Use
  Company Number: US-UCBSA-2015005864

PATIENT
  Sex: Female
  Weight: 80.3 kg

DRUGS (2)
  1. CIMZIA [Suspect]
     Active Substance: CERTOLIZUMAB PEGOL
     Indication: RHEUMATOID ARTHRITIS
  2. CIMZIA [Suspect]
     Active Substance: CERTOLIZUMAB PEGOL
     Indication: POLYARTHRITIS
     Dosage: 400 MG, EV 4 WEEKS; STRENGTH: 200 MG (EXPIRATION DATE: 30-AUG-2014)
     Route: 058
     Dates: start: 20120216, end: 20130923

REACTIONS (1)
  - Lupus-like syndrome [Unknown]
